FAERS Safety Report 24939776 (Version 2)
Quarter: 2025Q1

REPORT INFORMATION
  Report Type: Report from Study
  Country: TH (occurrence: TH)
  Receive Date: 20250207
  Receipt Date: 20250213
  Transmission Date: 20250408
  Serious: Yes (Death)
  Sender: ROCHE
  Company Number: TH-ROCHE-10000201530

PATIENT
  Age: 82 Year
  Sex: Male

DRUGS (1)
  1. TECENTRIQ [Suspect]
     Active Substance: ATEZOLIZUMAB
     Indication: Non-small cell lung cancer
     Route: 065

REACTIONS (1)
  - Death [Fatal]
